FAERS Safety Report 24013564 (Version 1)
Quarter: 2024Q2

REPORT INFORMATION
  Report Type: Spontaneous
  Country: BR (occurrence: BR)
  Receive Date: 20240626
  Receipt Date: 20240626
  Transmission Date: 20240716
  Serious: Yes (Death, Hospitalization, Other)
  Sender: FDA-Public Use
  Company Number: BR-ALKEM LABORATORIES LIMITED-BR-ALKEM-2024-13499

PATIENT
  Age: 76 Year
  Sex: Female

DRUGS (11)
  1. AZATHIOPRINE [Suspect]
     Active Substance: AZATHIOPRINE
     Indication: Rheumatoid arthritis
     Dosage: 100 MILLIGRAM, QD
     Route: 065
  2. METHYLPREDNISOLONE [Suspect]
     Active Substance: METHYLPREDNISOLONE
     Indication: Rheumatoid arthritis
     Dosage: 1000 MILLIGRAM, QD
     Route: 042
  3. METHYLPREDNISOLONE [Suspect]
     Active Substance: METHYLPREDNISOLONE
     Dosage: 1 GRAM, QD
     Route: 042
  4. CYCLOPHOSPHAMIDE [Suspect]
     Active Substance: CYCLOPHOSPHAMIDE
     Indication: Rheumatoid arthritis
     Dosage: UNK (0.75 GRAM/M2 BODY SURFACE)
     Route: 042
  5. PREDNISOLONE [Suspect]
     Active Substance: PREDNISOLONE
     Indication: Scleritis
     Dosage: 0.5 MILLIGRAM/KILOGRAM, QD
     Route: 065
  6. PREDNISOLONE [Suspect]
     Active Substance: PREDNISOLONE
     Indication: Rheumatoid arthritis
     Dosage: 1 DROP (EVERY 4 HOURS)
     Route: 061
  7. PREDNISOLONE [Suspect]
     Active Substance: PREDNISOLONE
     Dosage: 1 MILLIGRAM/KILOGRAM, QD (60 MILLIGRAM CONCENTRATION)
     Route: 048
  8. PREDNISOLONE [Suspect]
     Active Substance: PREDNISOLONE
     Dosage: 30 MILLIGRAM, QD
     Route: 065
  9. PREDNISOLONE [Suspect]
     Active Substance: PREDNISOLONE
     Dosage: 60 MILLIGRAM, QD
     Route: 065
  10. RITUXIMAB [Suspect]
     Active Substance: RITUXIMAB
     Indication: Rheumatoid arthritis
     Dosage: 1 GRAM
     Route: 065
  11. RITUXIMAB [Suspect]
     Active Substance: RITUXIMAB
     Dosage: 1 GRAM (SECOND INFUSION)
     Route: 065

REACTIONS (4)
  - Respiratory failure [Fatal]
  - Pneumonia [Fatal]
  - Treatment noncompliance [Unknown]
  - Therapy non-responder [Unknown]
